FAERS Safety Report 12470172 (Version 1)
Quarter: 2016Q2

REPORT INFORMATION
  Report Type: Spontaneous
  Country: BR (occurrence: BR)
  Receive Date: 20160616
  Receipt Date: 20160616
  Transmission Date: 20160815
  Serious: Yes (Other)
  Sender: FDA-Public Use
  Company Number: BR-ROCHE-1775168

PATIENT
  Age: 58 Year
  Sex: Female

DRUGS (3)
  1. RIVOTRIL [Suspect]
     Active Substance: CLONAZEPAM
     Indication: DIZZINESS
     Route: 065
     Dates: start: 2009
  2. RIVOTRIL [Suspect]
     Active Substance: CLONAZEPAM
     Route: 065
     Dates: start: 2013
  3. RIVOTRIL [Suspect]
     Active Substance: CLONAZEPAM
     Indication: DIZZINESS
     Route: 065
     Dates: start: 20160609

REACTIONS (7)
  - Feeling cold [Unknown]
  - Paraesthesia [Unknown]
  - Incorrect product formulation administered [Unknown]
  - Insomnia [Not Recovered/Not Resolved]
  - Nephrolithiasis [Not Recovered/Not Resolved]
  - Drug withdrawal syndrome [Unknown]
  - Tension headache [Unknown]

NARRATIVE: CASE EVENT DATE: 2013
